FAERS Safety Report 23168791 (Version 2)
Quarter: 2023Q4

REPORT INFORMATION
  Report Type: Spontaneous
  Country: US (occurrence: US)
  Receive Date: 20231110
  Receipt Date: 20231204
  Transmission Date: 20240110
  Serious: Yes (Other)
  Sender: FDA-Public Use
  Company Number: US-JNJFOC-20231108623

PATIENT
  Age: 60 Year
  Sex: Male

DRUGS (2)
  1. XARELTO [Suspect]
     Active Substance: RIVAROXABAN
     Indication: Product used for unknown indication
     Route: 048
     Dates: start: 202212
  2. TADALAFIL [Concomitant]
     Active Substance: TADALAFIL
     Indication: Prostatic disorder
     Route: 065

REACTIONS (5)
  - Rectal haemorrhage [Unknown]
  - Eye haemorrhage [Recovered/Resolved]
  - Scrotal haemorrhage [Unknown]
  - Wound haemorrhage [Unknown]
  - Adverse event [Unknown]
